FAERS Safety Report 5027320-4 (Version None)
Quarter: 2006Q2

REPORT INFORMATION
  Report Type: 
  Country: None (occurrence: None)
  Receive Date: 20060612
  Receipt Date: 20060530
  Transmission Date: 20061013
  Serious: Yes (Other)
  Sender: FDA-Public Use
  Company Number: HQWYE038215APR05

PATIENT
  Age: 63 Year
  Sex: Female
  Weight: 71.73 kg

DRUGS (2)
  1. PREMARIN [Suspect]
     Dates: start: 19900101
  2. PROVERA [Suspect]
     Dates: start: 19900101

REACTIONS (4)
  - BREAST CANCER IN SITU [None]
  - BREAST CANCER METASTATIC [None]
  - FIBROCYSTIC BREAST DISEASE [None]
  - METASTASES TO LYMPH NODES [None]
